FAERS Safety Report 6400554-X (Version None)
Quarter: 2009Q4

REPORT INFORMATION
  Report Type: 
  Country: None (occurrence: None)
  Receive Date: 20091014
  Receipt Date: 20091005
  Transmission Date: 20100525
  Serious: Yes (Other)
  Sender: FDA-Public Use
  Company Number: US-BAYER-200935312GPV

PATIENT
  Age: 43 Year
  Sex: Female

DRUGS (3)
  1. NAPROXEN [Suspect]
     Indication: OSTEOARTHRITIS
     Dosage: 600-800 MG DAILY
  2. ASPIRIN [Suspect]
     Indication: DRUG USE FOR UNKNOWN INDICATION
  3. TURMERIC THERAPY [Suspect]
     Dosage: 450 MG DAILY

REACTIONS (3)
  - DUODENAL ULCER [None]
  - DYSPEPSIA [None]
  - EPIGASTRIC DISCOMFORT [None]
